FAERS Safety Report 6530461-3 (Version None)
Quarter: 2010Q1

REPORT INFORMATION
  Report Type: 
  Country: None (occurrence: None)
  Receive Date: 20100106
  Receipt Date: 20100106
  Transmission Date: 20100710
  Serious: No
  Sender: FDA-Public Use
  Company Number: None

PATIENT
  Age: 71 Year
  Sex: Female
  Weight: 72.1219 kg

DRUGS (1)
  1. HYDROXYUREA [Suspect]
     Dosage: 500 MGS 1 X DAILY
     Dates: start: 20090110, end: 20091202

REACTIONS (1)
  - OPEN WOUND [None]
